FAERS Safety Report 10685288 (Version 1)
Quarter: 2014Q4

REPORT INFORMATION
  Report Type: Spontaneous
  Country: US (occurrence: None)
  Receive Date: 20141218
  Receipt Date: 20141218
  Transmission Date: 20150529
  Serious: Yes (Other)
  Sender: FDA-Public Use
  Company Number: 2014SUN01095

PATIENT
  Sex: Male

DRUGS (1)
  1. PROPAFENONE HYDROCHLORIDE TABLETS 300MG [Suspect]
     Active Substance: PROPAFENONE HYDROCHLORIDE
     Indication: ATRIAL FIBRILLATION
     Dates: start: 201401

REACTIONS (1)
  - Drug ineffective [None]
